FAERS Safety Report 4676651-6 (Version None)
Quarter: 2005Q2

REPORT INFORMATION
  Report Type: 
  Country: None (occurrence: None)
  Receive Date: 20050527
  Receipt Date: 20050519
  Transmission Date: 20051028
  Serious: Yes (Hospitalization)
  Sender: FDA-Public Use
  Company Number: FR-ROCHE-405352

PATIENT
  Age: 65 Year
  Sex: Male
  Weight: 45 kg

DRUGS (6)
  1. INVIRASE [Suspect]
     Route: 048
     Dates: end: 20041215
  2. ZIAGEN [Suspect]
     Route: 048
     Dates: end: 20050107
  3. NORVIR [Suspect]
     Route: 048
  4. VIDEX [Suspect]
     Route: 048
     Dates: start: 20000515, end: 20041215
  5. MACROLIN [Suspect]
     Dosage: 6 CYCLES OF 5 DAYS TREATMENT RECEIVED
     Route: 058
     Dates: start: 20001101, end: 20010701
  6. MACROLIN [Suspect]
     Dosage: 3 CYCLES OF 5 DAYS TREATMENT RECEIVED
     Route: 058
     Dates: start: 20030515, end: 20030815

REACTIONS (19)
  - ASCITES [None]
  - CHOLESTASIS [None]
  - COORDINATION ABNORMAL [None]
  - DIARRHOEA [None]
  - ERYTHEMA [None]
  - FALL [None]
  - FIBROSIS [None]
  - GAIT DISTURBANCE [None]
  - HYPERBILIRUBINAEMIA [None]
  - HYPERKERATOSIS [None]
  - NEUROPATHY PERIPHERAL [None]
  - NODULAR REGENERATIVE HYPERPLASIA [None]
  - OVERDOSE [None]
  - POLYP COLORECTAL [None]
  - PORTAL HYPERTENSION [None]
  - SELENIUM DEFICIENCY [None]
  - STEATORRHOEA [None]
  - VARICES OESOPHAGEAL [None]
  - VITAMIN D DEFICIENCY [None]
